FAERS Safety Report 6248624-3 (Version None)
Quarter: 2009Q2

REPORT INFORMATION
  Report Type: 
  Country: None (occurrence: None)
  Receive Date: 20090624
  Receipt Date: 20090624
  Transmission Date: 20091009
  Serious: Yes (Life-Threatening, Hospitalization)
  Sender: FDA-Public Use
  Company Number: None

PATIENT
  Age: 56 Year
  Sex: Female
  Weight: 150 kg

DRUGS (11)
  1. WARFARIN SODIUM [Suspect]
     Indication: THROMBOSIS PROPHYLAXIS
     Dosage: 10MG ALT WITH 7.5MG PO QD (HOME)
     Route: 048
  2. LASIX [Concomitant]
  3. LISINOPRIL [Concomitant]
  4. REGLAN [Concomitant]
  5. M.V.I. [Concomitant]
  6. PERCOCET [Concomitant]
  7. PRILOSEC [Concomitant]
  8. AMITRIPTYLINE [Concomitant]
  9. KLOR-CON [Concomitant]
  10. GLIPIZIDE [Concomitant]
  11. GABAPENTIN [Concomitant]

REACTIONS (7)
  - ASTHENIA [None]
  - BLOOD CREATINE INCREASED [None]
  - FATIGUE [None]
  - HAEMATOCHEZIA [None]
  - INTERNATIONAL NORMALISED RATIO INCREASED [None]
  - NAUSEA [None]
  - NUTRITIONAL CONDITION ABNORMAL [None]
